FAERS Safety Report 18472317 (Version 1)
Quarter: 2020Q4

REPORT INFORMATION
  Report Type: Spontaneous
  Country: US (occurrence: US)
  Receive Date: 20201106
  Receipt Date: 20201106
  Transmission Date: 20210114
  Serious: No
  Sender: FDA-Public Use
  Company Number: US-GLAXOSMITHKLINE-US2020215247

PATIENT
  Age: 59 Year
  Sex: Female

DRUGS (1)
  1. VOLTAREN [Suspect]
     Active Substance: DICLOFENAC SODIUM
     Indication: CONTUSION
     Dosage: UNK, BID

REACTIONS (4)
  - Product use in unapproved indication [Unknown]
  - Expired product administered [Unknown]
  - Drug effective for unapproved indication [Unknown]
  - Contraindicated product administered [Unknown]
